FAERS Safety Report 6370026-X (Version None)
Quarter: 2009Q3

REPORT INFORMATION
  Report Type: 
  Country: None (occurrence: None)
  Receive Date: 20090923
  Receipt Date: 20070530
  Transmission Date: 20100115
  Serious: No
  Sender: FDA-Public Use
  Company Number: US-ASTRAZENECA-2006UW08155

PATIENT
  Age: 50 Year
  Sex: Female
  Weight: 128.4 kg

DRUGS (4)
  1. SEROQUEL [Suspect]
     Indication: DEPRESSION
     Route: 048
     Dates: start: 20041216, end: 20051110
  2. LEVOXYL [Concomitant]
     Route: 065
  3. MAXZIDE [Concomitant]
     Route: 065
  4. ALBUTEROL [Concomitant]
     Dosage: INHALER
     Route: 065

REACTIONS (6)
  - BREAST PAIN [None]
  - COUGH [None]
  - DIABETES MELLITUS [None]
  - NASOPHARYNGITIS [None]
  - NECK PAIN [None]
  - ROAD TRAFFIC ACCIDENT [None]
